FAERS Safety Report 5403831-4 (Version None)
Quarter: 2007Q3

REPORT INFORMATION
  Report Type: 
  Country: None (occurrence: None)
  Receive Date: 20070731
  Receipt Date: 20070731
  Transmission Date: 20080115
  Serious: Yes (Other)
  Sender: FDA-Public Use
  Company Number: None

PATIENT
  Sex: Female

DRUGS (1)
  1. KETALAR [Suspect]
     Indication: SEDATIVE THERAPY
     Dosage: TITRATED TO EFFECT TITRATED TO EFFECT IV BOLUS
     Route: 040
     Dates: start: 20070711, end: 20070729

REACTIONS (4)
  - ABNORMAL BEHAVIOUR [None]
  - PAIN [None]
  - PHARMACEUTICAL PRODUCT COMPLAINT [None]
  - UNWANTED AWARENESS DURING ANAESTHESIA [None]
